FAERS Safety Report 9729469 (Version 1)
Quarter: 2013Q4

REPORT INFORMATION
  Report Type: Spontaneous
  Country: US (occurrence: US)
  Receive Date: 20131204
  Receipt Date: 20131204
  Transmission Date: 20140711
  Serious: No
  Sender: FDA-Public Use
  Company Number: US-GILEAD-2009-0021564

PATIENT
  Age: 69 Year
  Sex: Female

DRUGS (8)
  1. LETAIRIS [Suspect]
     Indication: PULMONARY ARTERIAL HYPERTENSION
     Route: 048
     Dates: start: 20070924
  2. LISINOPRIL [Concomitant]
  3. ASA [Concomitant]
  4. B COMPLEX [Concomitant]
  5. OMEGA 3 [Concomitant]
  6. CALCIUM [Concomitant]
  7. CO Q10 [Concomitant]
  8. ACTANOL [Concomitant]

REACTIONS (1)
  - Red blood cell count decreased [Recovered/Resolved]
